FAERS Safety Report 17646787 (Version 10)
Quarter: 2021Q4

REPORT INFORMATION
  Report Type: Report from Study
  Country: US (occurrence: US)
  Receive Date: 20200408
  Receipt Date: 20211101
  Transmission Date: 20220303
  Serious: No
  Sender: FDA-Public Use
  Company Number: NVSC2020US092815

PATIENT
  Sex: Male

DRUGS (3)
  1. COSENTYX [Suspect]
     Active Substance: SECUKINUMAB
     Indication: Dermatitis exfoliative generalised
     Dosage: 300 MG, QW, SUBCUTANEOUS - BENEATH THE SKIN
     Route: 058
     Dates: start: 20200415
  2. COSENTYX [Suspect]
     Active Substance: SECUKINUMAB
     Indication: Psoriasis
     Dosage: 300 MG, QW,2ND LOADING DOSE
     Route: 058
     Dates: start: 20200422
  3. COSENTYX [Suspect]
     Active Substance: SECUKINUMAB
     Dosage: 300 MG, QMO
     Route: 058

REACTIONS (9)
  - Withdrawal syndrome [Unknown]
  - Peripheral swelling [Unknown]
  - Psoriasis [Unknown]
  - Skin irritation [Unknown]
  - Skin discolouration [Unknown]
  - Condition aggravated [Unknown]
  - Inappropriate schedule of product administration [Unknown]
  - Product availability issue [Unknown]
  - Product dose omission issue [Unknown]
